FAERS Safety Report 6379290-4 (Version None)
Quarter: 2009Q3

REPORT INFORMATION
  Report Type: 
  Country: None (occurrence: None)
  Receive Date: 20090923
  Receipt Date: 20090923
  Transmission Date: 20100115
  Serious: No
  Sender: FDA-Public Use
  Company Number: None

PATIENT
  Age: 39 Year
  Sex: Male

DRUGS (11)
  1. INSULIN GLARGINE [Suspect]
     Indication: TYPE 1 DIABETES MELLITUS
     Dosage: 14 UNITS SQ QHS
     Route: 058
     Dates: start: 20081103
  2. INSULIN ASPART [Suspect]
     Indication: TYPE 1 DIABETES MELLITUS
     Dosage: SSI-M PRN SQ
     Route: 058
     Dates: start: 20081103, end: 20081104
  3. HEPSQ [Concomitant]
  4. LANSOPRAZOLE [Concomitant]
  5. LISINOPRIL [Concomitant]
  6. METOCLOPRAMIDE [Concomitant]
  7. METOPROLOL [Concomitant]
  8. MYCOPHENOLATE MOFETIL [Concomitant]
  9. PREDNISONE TAB [Concomitant]
  10. TACROLIMUS [Concomitant]
  11. ZINC SULFATE [Concomitant]

REACTIONS (9)
  - ABDOMINAL PAIN [None]
  - BLOOD GLUCOSE DECREASED [None]
  - BLOOD GLUCOSE INCREASED [None]
  - DIARRHOEA [None]
  - IRRITABILITY [None]
  - NAUSEA [None]
  - PYREXIA [None]
  - TREMOR [None]
  - VOMITING [None]
